FAERS Safety Report 15202524 (Version 1)
Quarter: 2018Q3

REPORT INFORMATION
  Report Type: Spontaneous
  Country: US (occurrence: US)
  Receive Date: 20180627
  Receipt Date: 20180627
  Transmission Date: 20181010
  Serious: Yes (Hospitalization)
  Sender: FDA-Public Use
  Company Number: None

PATIENT
  Age: 9 Year

DRUGS (7)
  1. MULTIVITAMIN [Concomitant]
     Active Substance: VITAMINS
  2. OMNITROPE [Suspect]
     Active Substance: SOMATROPIN
     Indication: HYPOPITUITARISM
     Dosage: UNDER THE SKIN
     Dates: start: 201805
  3. VITAMIN D CHILD [Concomitant]
  4. CEFTRIAXONE. [Concomitant]
     Active Substance: CEFTRIAXONE
  5. PROBIOTIC [Concomitant]
     Active Substance: PROBIOTICS NOS
  6. TYLENOL [Concomitant]
     Active Substance: ACETAMINOPHEN
  7. FLAGYL [Concomitant]
     Active Substance: METRONIDAZOLE\METRONIDAZOLE HYDROCHLORIDE

REACTIONS (2)
  - Drug dose omission [None]
  - Hospitalisation [None]

NARRATIVE: CASE EVENT DATE: 2018
